FAERS Safety Report 26184988 (Version 1)
Quarter: 2025Q4

REPORT INFORMATION
  Report Type: Spontaneous
  Country: US (occurrence: US)
  Receive Date: 20251222
  Receipt Date: 20251222
  Transmission Date: 20260118
  Serious: No
  Sender: AMGEN
  Company Number: US-AMGEN-USASP2025247452

PATIENT
  Sex: Male

DRUGS (3)
  1. WEZLANA [Suspect]
     Active Substance: USTEKINUMAB-AUUB
     Indication: Product used for unknown indication
     Dosage: UNK
     Route: 065
  2. STELARA [Concomitant]
     Active Substance: USTEKINUMAB
     Route: 065
  3. STELARA [Concomitant]
     Active Substance: USTEKINUMAB
     Route: 065

REACTIONS (1)
  - Hypersensitivity [Unknown]
